FAERS Safety Report 5382428-9 (Version None)
Quarter: 2007Q2

REPORT INFORMATION
  Report Type: 
  Country: None (occurrence: None)
  Receive Date: 20070629
  Receipt Date: 20060705
  Transmission Date: 20071010
  Serious: Yes (Hospitalization)
  Sender: FDA-Public Use
  Company Number: VISP-PR-0607S-0438

PATIENT
  Sex: Female

DRUGS (1)
  1. VISIPAQUE [Suspect]
     Indication: CAROTID ARTERY STENOSIS
     Dosage: NR, SINGLE DOSE, I.A.
     Route: 013
     Dates: start: 20060629, end: 20060629

REACTIONS (1)
  - CONVULSION [None]
